FAERS Safety Report 23676723 (Version 1)
Quarter: 2024Q1

REPORT INFORMATION
  Report Type: Report from Study
  Country: DE (occurrence: DE)
  Receive Date: 20240327
  Receipt Date: 20240327
  Transmission Date: 20240409
  Serious: Yes (Death, Other)
  Sender: FDA-Public Use
  Company Number: DE-JNJFOC-20240365186

PATIENT
  Age: 9 Decade
  Sex: Female
  Weight: 58 kg

DRUGS (7)
  1. BORTEZOMIB [Suspect]
     Active Substance: BORTEZOMIB
     Indication: Plasma cell myeloma
     Dosage: 2.16 MILLIGRAM
     Route: 065
     Dates: start: 20231128, end: 20231128
  2. BORTEZOMIB [Suspect]
     Active Substance: BORTEZOMIB
     Dosage: 2.16 MILLIGRAM
     Route: 065
     Dates: end: 20231128
  3. DEXAMETHASONE [Suspect]
     Active Substance: DEXAMETHASONE
     Indication: Plasma cell myeloma
     Dosage: 10 MILLIGRAM
     Route: 065
     Dates: start: 20231123, end: 20231123
  4. DEXAMETHASONE [Suspect]
     Active Substance: DEXAMETHASONE
     Dosage: 10 MILLIGRAM
     Route: 065
     Dates: end: 20231128
  5. SELINEXOR [Suspect]
     Active Substance: SELINEXOR
     Indication: Plasma cell myeloma
     Dosage: 60 MILLIGRAM
     Route: 065
     Dates: start: 20231123, end: 20231128
  6. SELINEXOR [Suspect]
     Active Substance: SELINEXOR
     Dosage: 20 MILLIGRAM
     Route: 065
     Dates: end: 20231128
  7. CANDESARTAN STADA [Concomitant]
     Indication: Product used for unknown indication
     Dosage: 8 MILLIGRAM, BID
     Route: 048

REACTIONS (1)
  - Plasma cell myeloma [Fatal]

NARRATIVE: CASE EVENT DATE: 20231128
